FAERS Safety Report 11003062 (Version 2)
Quarter: 2015Q2

REPORT INFORMATION
  Report Type: Spontaneous
  Country: FR (occurrence: FR)
  Receive Date: 20150409
  Receipt Date: 20150420
  Transmission Date: 20150821
  Serious: Yes (Other)
  Sender: FDA-Public Use
  Company Number: FR-AMGEN-FRASP2015033410

PATIENT
  Age: 68 Year
  Sex: Male

DRUGS (4)
  1. ISOPTIN [Concomitant]
     Active Substance: VERAPAMIL HYDROCHLORIDE
     Dosage: UNK
  2. COVERSYL                           /00790702/ [Concomitant]
     Active Substance: PERINDOPRIL
     Dosage: UNK
  3. EUPANTOL [Concomitant]
     Active Substance: PANTOPRAZOLE SODIUM
     Dosage: UNK
  4. ENBREL [Suspect]
     Active Substance: ETANERCEPT
     Indication: ANKYLOSING SPONDYLITIS
     Dosage: UNK
     Route: 058
     Dates: start: 201408, end: 201412

REACTIONS (5)
  - Spinal pain [Unknown]
  - Lymphocyte morphology abnormal [Not Recovered/Not Resolved]
  - Chronic lymphocytic leukaemia [Unknown]
  - Inflammation [Unknown]
  - Lymphocytosis [Recovered/Resolved]

NARRATIVE: CASE EVENT DATE: 201410
